FAERS Safety Report 6568486-4 (Version None)
Quarter: 2010Q1

REPORT INFORMATION
  Report Type: 
  Country: None (occurrence: None)
  Receive Date: 20100203
  Receipt Date: 20100128
  Transmission Date: 20100710
  Serious: Yes (Hospitalization)
  Sender: FDA-Public Use
  Company Number: B0629215A

PATIENT
  Sex: Male

DRUGS (4)
  1. SERETIDE [Suspect]
     Indication: ASTHMA
     Dosage: 250MCG TWICE PER DAY
     Route: 055
     Dates: start: 20080601
  2. RELENZA [Concomitant]
     Route: 055
     Dates: start: 20091104
  3. CLARITH [Concomitant]
     Indication: INFECTION PROPHYLAXIS
     Dosage: 400MG PER DAY
     Route: 048
     Dates: start: 20091104
  4. KIPRES [Concomitant]
     Indication: INFECTION PROPHYLAXIS
     Route: 048

REACTIONS (1)
  - ASTHMA [None]
